FAERS Safety Report 6386438-4 (Version None)
Quarter: 2009Q4

REPORT INFORMATION
  Report Type: 
  Country: None (occurrence: None)
  Receive Date: 20091002
  Receipt Date: 20090507
  Transmission Date: 20100525
  Serious: No
  Sender: FDA-Public Use
  Company Number: US-ASTRAZENECA-2009UW11700

PATIENT
  Sex: Female
  Weight: 86.2 kg

DRUGS (1)
  1. ARIMIDEX [Suspect]
     Route: 048
     Dates: start: 20090226

REACTIONS (4)
  - ANXIETY [None]
  - HEADACHE [None]
  - HEART RATE INCREASED [None]
  - OEDEMA PERIPHERAL [None]
